FAERS Safety Report 4846747-4 (Version None)
Quarter: 2005Q4

REPORT INFORMATION
  Report Type: 
  Country: None (occurrence: None)
  Receive Date: 20051202
  Receipt Date: 20051123
  Transmission Date: 20060501
  Serious: Yes (Hospitalization)
  Sender: FDA-Public Use
  Company Number: 2005-11-1372

PATIENT
  Age: 76 Year
  Sex: Female

DRUGS (8)
  1. TEMODAL [Suspect]
     Indication: METASTASES TO CENTRAL NERVOUS SYSTEM
     Dosage: 120MG OD PO ORAL
     Route: 048
     Dates: start: 20051107, end: 20051116
  2. RADIATION THERAPY [Concomitant]
  3. PANTOPRAZOL [Concomitant]
  4. DEXAMETHASONE [Concomitant]
  5. FLUCONAZOLE [Concomitant]
  6. BACTRIM DS [Concomitant]
  7. CEFTRIAXONE [Concomitant]
  8. METRONIDAZOLE [Concomitant]

REACTIONS (5)
  - ABDOMINAL PAIN [None]
  - CONSTIPATION [None]
  - DIVERTICULITIS [None]
  - PNEUMOPERITONEUM [None]
  - THROMBOCYTOPENIA [None]
